FAERS Safety Report 6633925-7 (Version None)
Quarter: 2010Q1

REPORT INFORMATION
  Report Type: 
  Country: None (occurrence: None)
  Receive Date: 20100315
  Receipt Date: 20100310
  Transmission Date: 20100710
  Serious: Yes (Hospitalization)
  Sender: FDA-Public Use
  Company Number: US-KINGPHARMUSA00001-K201000297

PATIENT
  Age: 55 Year
  Sex: Female

DRUGS (4)
  1. FLECTOR [Suspect]
     Indication: NECK PAIN
     Dosage: 1 PATCH, 12 HOURS A DAY
     Route: 061
     Dates: start: 20100120, end: 20100310
  2. FLECTOR [Suspect]
     Indication: ARTHRALGIA
  3. DICLOFENAC [Suspect]
     Indication: ARTHRALGIA
     Dosage: 75 MG, BID
     Route: 048
     Dates: end: 20100310
  4. DICLOFENAC [Suspect]
     Indication: NECK PAIN

REACTIONS (3)
  - HEPATIC ENZYME INCREASED [None]
  - JAUNDICE [None]
  - MALAISE [None]
